FAERS Safety Report 11528828 (Version 1)
Quarter: 2015Q3

REPORT INFORMATION
  Report Type: Spontaneous
  Country: US (occurrence: US)
  Receive Date: 20150921
  Receipt Date: 20150921
  Transmission Date: 20151125
  Serious: No
  Sender: FDA-Public Use
  Company Number: US-PFIZER INC-2015302917

PATIENT
  Sex: Female

DRUGS (1)
  1. LYRICA [Suspect]
     Active Substance: PREGABALIN
     Indication: FIBROMYALGIA
     Dosage: UNK

REACTIONS (11)
  - Pain [Unknown]
  - Condition aggravated [Unknown]
  - Hypoaesthesia [Unknown]
  - Sciatica [Unknown]
  - Paraesthesia [Unknown]
  - Anxiety [Unknown]
  - Oedema [Unknown]
  - Back pain [Unknown]
  - Joint swelling [Unknown]
  - Depression [Unknown]
  - Neuropathy peripheral [Unknown]
